FAERS Safety Report 24916514 (Version 1)
Quarter: 2025Q1

REPORT INFORMATION
  Report Type: Spontaneous
  Country: CA (occurrence: CA)
  Receive Date: 20250203
  Receipt Date: 20250203
  Transmission Date: 20250409
  Serious: Yes (Other)
  Sender: SANDOZ
  Company Number: CA-SANDOZ-SDZ2025CA004699

PATIENT
  Age: 53 Year
  Sex: Male

DRUGS (527)
  1. ADALIMUMAB [Suspect]
     Active Substance: ADALIMUMAB
     Route: 048
  2. ADALIMUMAB [Suspect]
     Active Substance: ADALIMUMAB
     Route: 048
  3. ADALIMUMAB [Suspect]
     Active Substance: ADALIMUMAB
     Route: 048
  4. ADALIMUMAB [Suspect]
     Active Substance: ADALIMUMAB
     Route: 058
  5. ADALIMUMAB [Suspect]
     Active Substance: ADALIMUMAB
     Route: 058
  6. ADALIMUMAB [Suspect]
     Active Substance: ADALIMUMAB
     Route: 058
  7. ADALIMUMAB [Suspect]
     Active Substance: ADALIMUMAB
     Route: 048
  8. ADALIMUMAB [Suspect]
     Active Substance: ADALIMUMAB
     Route: 048
  9. ADALIMUMAB [Suspect]
     Active Substance: ADALIMUMAB
     Route: 048
  10. ADALIMUMAB [Suspect]
     Active Substance: ADALIMUMAB
     Indication: Crohn^s disease
     Route: 058
  11. ADALIMUMAB [Suspect]
     Active Substance: ADALIMUMAB
     Indication: Colitis ulcerative
     Route: 065
  12. ADALIMUMAB [Suspect]
     Active Substance: ADALIMUMAB
     Indication: Crohn^s disease
     Route: 058
  13. ADALIMUMAB [Suspect]
     Active Substance: ADALIMUMAB
     Indication: Colitis ulcerative
     Route: 065
  14. ADALIMUMAB [Suspect]
     Active Substance: ADALIMUMAB
     Route: 065
  15. ADALIMUMAB [Suspect]
     Active Substance: ADALIMUMAB
     Route: 065
  16. ADALIMUMAB [Suspect]
     Active Substance: ADALIMUMAB
     Route: 065
  17. ADALIMUMAB [Suspect]
     Active Substance: ADALIMUMAB
     Route: 065
  18. ADALIMUMAB [Suspect]
     Active Substance: ADALIMUMAB
     Route: 065
  19. ADALIMUMAB [Suspect]
     Active Substance: ADALIMUMAB
     Route: 065
  20. ADALIMUMAB [Suspect]
     Active Substance: ADALIMUMAB
     Route: 065
  21. ADALIMUMAB [Suspect]
     Active Substance: ADALIMUMAB
     Route: 065
  22. ADALIMUMAB [Suspect]
     Active Substance: ADALIMUMAB
     Route: 065
  23. ACETAMINOPHEN [Suspect]
     Active Substance: ACETAMINOPHEN
     Route: 065
  24. ACETAMINOPHEN [Suspect]
     Active Substance: ACETAMINOPHEN
     Indication: Ill-defined disorder
     Route: 065
  25. ACETAMINOPHEN [Suspect]
     Active Substance: ACETAMINOPHEN
     Route: 065
  26. ACETAMINOPHEN [Suspect]
     Active Substance: ACETAMINOPHEN
     Route: 065
  27. ALBENDAZOLE [Suspect]
     Active Substance: ALBENDAZOLE
     Indication: Colitis ulcerative
     Route: 042
  28. ALBENDAZOLE [Suspect]
     Active Substance: ALBENDAZOLE
     Indication: Deep vein thrombosis
     Route: 042
  29. ALBENDAZOLE [Suspect]
     Active Substance: ALBENDAZOLE
     Route: 042
  30. ALBENDAZOLE [Suspect]
     Active Substance: ALBENDAZOLE
     Route: 042
  31. ALBENDAZOLE [Suspect]
     Active Substance: ALBENDAZOLE
     Route: 048
  32. ALBENDAZOLE [Suspect]
     Active Substance: ALBENDAZOLE
     Route: 048
  33. ASACOL [Suspect]
     Active Substance: MESALAMINE
     Route: 048
  34. ASACOL [Suspect]
     Active Substance: MESALAMINE
     Route: 065
  35. ASACOL [Suspect]
     Active Substance: MESALAMINE
     Route: 065
  36. ASACOL [Suspect]
     Active Substance: MESALAMINE
     Route: 065
  37. ASACOL [Suspect]
     Active Substance: MESALAMINE
     Route: 065
  38. ASACOL [Suspect]
     Active Substance: MESALAMINE
     Route: 065
  39. ASACOL [Suspect]
     Active Substance: MESALAMINE
     Route: 065
  40. ASACOL [Suspect]
     Active Substance: MESALAMINE
     Route: 065
  41. ASACOL [Suspect]
     Active Substance: MESALAMINE
     Route: 065
  42. ASACOL [Suspect]
     Active Substance: MESALAMINE
     Route: 065
  43. ASACOL [Suspect]
     Active Substance: MESALAMINE
     Route: 065
  44. ASACOL [Suspect]
     Active Substance: MESALAMINE
     Route: 065
  45. ASACOL [Suspect]
     Active Substance: MESALAMINE
     Route: 065
  46. ASACOL [Suspect]
     Active Substance: MESALAMINE
     Route: 065
  47. ASACOL [Suspect]
     Active Substance: MESALAMINE
     Route: 065
  48. ASACOL [Suspect]
     Active Substance: MESALAMINE
     Route: 065
  49. ASACOL [Suspect]
     Active Substance: MESALAMINE
     Route: 065
  50. ASACOL [Suspect]
     Active Substance: MESALAMINE
     Route: 065
  51. ASACOL [Suspect]
     Active Substance: MESALAMINE
     Route: 065
  52. ASACOL [Suspect]
     Active Substance: MESALAMINE
     Route: 065
  53. ASACOL [Suspect]
     Active Substance: MESALAMINE
     Route: 065
  54. ASACOL [Suspect]
     Active Substance: MESALAMINE
     Route: 065
  55. ASACOL [Suspect]
     Active Substance: MESALAMINE
     Route: 065
  56. ASACOL [Suspect]
     Active Substance: MESALAMINE
     Route: 065
  57. ASACOL [Suspect]
     Active Substance: MESALAMINE
     Indication: Colitis ulcerative
     Route: 065
  58. ASACOL [Suspect]
     Active Substance: MESALAMINE
     Route: 065
  59. ASPIRIN [Suspect]
     Active Substance: ASPIRIN
     Indication: Ill-defined disorder
     Route: 065
  60. ASPIRIN [Suspect]
     Active Substance: ASPIRIN
     Indication: Product used for unknown indication
     Route: 065
  61. BUDESONIDE [Suspect]
     Active Substance: BUDESONIDE
     Indication: Colitis ulcerative
     Route: 048
  62. BUDESONIDE [Suspect]
     Active Substance: BUDESONIDE
     Route: 048
  63. BUDESONIDE [Suspect]
     Active Substance: BUDESONIDE
     Route: 048
  64. BUDESONIDE [Suspect]
     Active Substance: BUDESONIDE
     Route: 048
  65. BUDESONIDE [Suspect]
     Active Substance: BUDESONIDE
     Route: 048
  66. BUDESONIDE [Suspect]
     Active Substance: BUDESONIDE
     Route: 048
  67. BUDESONIDE [Suspect]
     Active Substance: BUDESONIDE
     Route: 048
  68. BUDESONIDE [Suspect]
     Active Substance: BUDESONIDE
     Route: 048
  69. BUDESONIDE [Suspect]
     Active Substance: BUDESONIDE
     Route: 048
  70. BUDESONIDE [Suspect]
     Active Substance: BUDESONIDE
     Route: 048
  71. BUDESONIDE [Suspect]
     Active Substance: BUDESONIDE
     Route: 048
  72. BUDESONIDE [Suspect]
     Active Substance: BUDESONIDE
     Route: 048
  73. BUDESONIDE [Suspect]
     Active Substance: BUDESONIDE
     Route: 048
  74. BUDESONIDE [Suspect]
     Active Substance: BUDESONIDE
     Route: 048
  75. BUDESONIDE [Suspect]
     Active Substance: BUDESONIDE
     Route: 048
  76. BUDESONIDE [Suspect]
     Active Substance: BUDESONIDE
     Route: 048
  77. BUDESONIDE [Suspect]
     Active Substance: BUDESONIDE
     Route: 048
  78. BUDESONIDE [Suspect]
     Active Substance: BUDESONIDE
     Route: 048
  79. BUDESONIDE [Suspect]
     Active Substance: BUDESONIDE
     Route: 048
  80. BUDESONIDE [Suspect]
     Active Substance: BUDESONIDE
     Route: 048
  81. BUDESONIDE [Suspect]
     Active Substance: BUDESONIDE
     Route: 048
  82. BUDESONIDE [Suspect]
     Active Substance: BUDESONIDE
     Route: 048
  83. BUDESONIDE [Suspect]
     Active Substance: BUDESONIDE
     Route: 048
  84. BUDESONIDE [Suspect]
     Active Substance: BUDESONIDE
     Route: 048
  85. BUDESONIDE [Suspect]
     Active Substance: BUDESONIDE
     Route: 065
  86. BUDESONIDE [Suspect]
     Active Substance: BUDESONIDE
     Route: 048
  87. BUDESONIDE [Suspect]
     Active Substance: BUDESONIDE
     Route: 048
  88. BUDESONIDE [Suspect]
     Active Substance: BUDESONIDE
     Route: 048
  89. BUDESONIDE [Suspect]
     Active Substance: BUDESONIDE
     Route: 048
  90. BUDESONIDE [Suspect]
     Active Substance: BUDESONIDE
     Route: 048
  91. BUDESONIDE [Suspect]
     Active Substance: BUDESONIDE
     Route: 048
  92. BUDESONIDE [Suspect]
     Active Substance: BUDESONIDE
     Route: 048
  93. BUDESONIDE [Suspect]
     Active Substance: BUDESONIDE
     Route: 048
  94. BUDESONIDE [Suspect]
     Active Substance: BUDESONIDE
     Route: 048
  95. BUDESONIDE [Suspect]
     Active Substance: BUDESONIDE
     Route: 048
  96. BUDESONIDE [Suspect]
     Active Substance: BUDESONIDE
     Route: 048
  97. BUDESONIDE [Suspect]
     Active Substance: BUDESONIDE
     Route: 048
  98. BUDESONIDE [Suspect]
     Active Substance: BUDESONIDE
     Route: 065
  99. BUDESONIDE [Suspect]
     Active Substance: BUDESONIDE
     Route: 065
  100. BUDESONIDE [Suspect]
     Active Substance: BUDESONIDE
     Route: 065
  101. BUDESONIDE [Suspect]
     Active Substance: BUDESONIDE
     Route: 065
  102. BUDESONIDE [Suspect]
     Active Substance: BUDESONIDE
     Route: 065
  103. BUDESONIDE [Suspect]
     Active Substance: BUDESONIDE
     Route: 065
  104. BUDESONIDE [Suspect]
     Active Substance: BUDESONIDE
     Route: 065
  105. BUDESONIDE [Suspect]
     Active Substance: BUDESONIDE
     Route: 065
  106. BUDESONIDE [Suspect]
     Active Substance: BUDESONIDE
     Route: 065
  107. CANDESARTAN [Suspect]
     Active Substance: CANDESARTAN
     Indication: Product used for unknown indication
     Route: 048
  108. CANDESARTAN [Suspect]
     Active Substance: CANDESARTAN
     Route: 048
  109. CANDESARTAN [Suspect]
     Active Substance: CANDESARTAN
     Route: 048
  110. AZD-1222 [Suspect]
     Active Substance: AZD-1222
     Route: 065
  111. AZD-1222 [Suspect]
     Active Substance: AZD-1222
     Route: 065
  112. AZD-1222 [Suspect]
     Active Substance: AZD-1222
     Indication: COVID-19 immunisation
     Route: 065
  113. AZD-1222 [Suspect]
     Active Substance: AZD-1222
     Route: 065
  114. AZD-1222 [Suspect]
     Active Substance: AZD-1222
     Route: 065
  115. AZD-1222 [Suspect]
     Active Substance: AZD-1222
     Route: 065
  116. AZD-1222 [Suspect]
     Active Substance: AZD-1222
     Route: 065
  117. AZD-1222 [Suspect]
     Active Substance: AZD-1222
     Route: 065
  118. AZD-1222 [Suspect]
     Active Substance: AZD-1222
     Route: 065
  119. AZD-1222 [Suspect]
     Active Substance: AZD-1222
     Route: 065
  120. AZD-1222 [Suspect]
     Active Substance: AZD-1222
     Route: 065
  121. AZD-1222 [Suspect]
     Active Substance: AZD-1222
     Route: 065
  122. AZD-1222 [Suspect]
     Active Substance: AZD-1222
     Route: 065
  123. AZD-1222 [Suspect]
     Active Substance: AZD-1222
     Route: 065
  124. AZD-1222 [Suspect]
     Active Substance: AZD-1222
     Route: 065
  125. AZD-1222 [Suspect]
     Active Substance: AZD-1222
     Route: 065
  126. AZD-1222 [Suspect]
     Active Substance: AZD-1222
     Route: 065
  127. AZD-1222 [Suspect]
     Active Substance: AZD-1222
     Route: 065
  128. AZD-1222 [Suspect]
     Active Substance: AZD-1222
     Route: 065
  129. AZD-1222 [Suspect]
     Active Substance: AZD-1222
     Route: 065
  130. AZD-1222 [Suspect]
     Active Substance: AZD-1222
     Indication: Adverse drug reaction
     Route: 065
  131. COMIRNATY (TOZINAMERAN) [Suspect]
     Active Substance: TOZINAMERAN
     Indication: Product used for unknown indication
     Route: 065
  132. CORTIFOAM [Suspect]
     Active Substance: HYDROCORTISONE ACETATE
     Indication: Deep vein thrombosis
     Route: 048
  133. CORTIFOAM [Suspect]
     Active Substance: HYDROCORTISONE ACETATE
     Route: 048
  134. CORTIFOAM [Suspect]
     Active Substance: HYDROCORTISONE ACETATE
     Route: 048
  135. CORTIFOAM [Suspect]
     Active Substance: HYDROCORTISONE ACETATE
     Route: 065
  136. CORTIFOAM [Suspect]
     Active Substance: HYDROCORTISONE ACETATE
     Route: 065
  137. CORTIFOAM [Suspect]
     Active Substance: HYDROCORTISONE ACETATE
     Indication: Colitis ulcerative
     Route: 048
  138. CORTIFOAM [Suspect]
     Active Substance: HYDROCORTISONE ACETATE
     Indication: Deep vein thrombosis
     Route: 048
  139. CORTIFOAM [Suspect]
     Active Substance: HYDROCORTISONE ACETATE
     Route: 048
  140. CORTIFOAM [Suspect]
     Active Substance: HYDROCORTISONE ACETATE
     Route: 048
  141. CORTIFOAM [Suspect]
     Active Substance: HYDROCORTISONE ACETATE
     Route: 048
  142. CORTIFOAM [Suspect]
     Active Substance: HYDROCORTISONE ACETATE
     Route: 048
  143. CORTIFOAM [Suspect]
     Active Substance: HYDROCORTISONE ACETATE
     Route: 048
  144. CORTIFOAM [Suspect]
     Active Substance: HYDROCORTISONE ACETATE
     Route: 048
  145. CORTIFOAM [Suspect]
     Active Substance: HYDROCORTISONE ACETATE
     Indication: Colitis ulcerative
     Route: 065
  146. CORTIFOAM [Suspect]
     Active Substance: HYDROCORTISONE ACETATE
     Indication: Colitis ulcerative
     Route: 065
  147. CORTIFOAM [Suspect]
     Active Substance: HYDROCORTISONE ACETATE
     Indication: Deep vein thrombosis
     Route: 065
  148. CORTIFOAM [Suspect]
     Active Substance: HYDROCORTISONE ACETATE
     Route: 065
  149. CORTIFOAM [Suspect]
     Active Substance: HYDROCORTISONE ACETATE
     Route: 065
  150. CORTIFOAM [Suspect]
     Active Substance: HYDROCORTISONE ACETATE
     Route: 065
  151. CORTIFOAM [Suspect]
     Active Substance: HYDROCORTISONE ACETATE
     Route: 065
  152. CORTIFOAM [Suspect]
     Active Substance: HYDROCORTISONE ACETATE
     Route: 065
  153. CORTIFOAM [Suspect]
     Active Substance: HYDROCORTISONE ACETATE
     Route: 065
  154. CORTIFOAM [Suspect]
     Active Substance: HYDROCORTISONE ACETATE
     Route: 065
  155. CORTIFOAM [Suspect]
     Active Substance: HYDROCORTISONE ACETATE
     Route: 048
  156. CORTIFOAM [Suspect]
     Active Substance: HYDROCORTISONE ACETATE
     Route: 048
  157. CORTIFOAM [Suspect]
     Active Substance: HYDROCORTISONE ACETATE
     Route: 048
  158. CORTIFOAM [Suspect]
     Active Substance: HYDROCORTISONE ACETATE
     Route: 048
  159. CORTIFOAM [Suspect]
     Active Substance: HYDROCORTISONE ACETATE
     Route: 048
  160. CORTIFOAM [Suspect]
     Active Substance: HYDROCORTISONE ACETATE
     Route: 065
  161. CORTIFOAM [Suspect]
     Active Substance: HYDROCORTISONE ACETATE
     Route: 065
  162. CORTIFOAM [Suspect]
     Active Substance: HYDROCORTISONE ACETATE
     Route: 065
  163. CORTIFOAM [Suspect]
     Active Substance: HYDROCORTISONE ACETATE
     Route: 065
  164. HYDROCORTISONE ACETATE [Suspect]
     Active Substance: HYDROCORTISONE ACETATE
     Route: 048
  165. HYDROCORTISONE ACETATE [Suspect]
     Active Substance: HYDROCORTISONE ACETATE
     Route: 048
  166. HYDROCORTISONE ACETATE [Suspect]
     Active Substance: HYDROCORTISONE ACETATE
     Route: 048
  167. HYDROCORTISONE ACETATE [Suspect]
     Active Substance: HYDROCORTISONE ACETATE
     Route: 048
  168. HYDROCORTISONE ACETATE [Suspect]
     Active Substance: HYDROCORTISONE ACETATE
     Route: 048
  169. HYDROCORTISONE ACETATE [Suspect]
     Active Substance: HYDROCORTISONE ACETATE
     Route: 048
  170. HYDROCORTISONE ACETATE [Suspect]
     Active Substance: HYDROCORTISONE ACETATE
     Route: 048
  171. HYDROCORTISONE ACETATE [Suspect]
     Active Substance: HYDROCORTISONE ACETATE
     Route: 048
  172. HYDROCORTISONE ACETATE [Suspect]
     Active Substance: HYDROCORTISONE ACETATE
     Route: 048
  173. HYDROCORTISONE ACETATE [Suspect]
     Active Substance: HYDROCORTISONE ACETATE
     Route: 048
  174. HYDROCORTISONE ACETATE [Suspect]
     Active Substance: HYDROCORTISONE ACETATE
     Route: 048
  175. HYDROCORTISONE ACETATE [Suspect]
     Active Substance: HYDROCORTISONE ACETATE
     Route: 048
  176. HYDROCORTISONE ACETATE [Suspect]
     Active Substance: HYDROCORTISONE ACETATE
     Route: 048
  177. HYDROCORTISONE ACETATE [Suspect]
     Active Substance: HYDROCORTISONE ACETATE
     Route: 048
  178. HYDROCORTISONE ACETATE [Suspect]
     Active Substance: HYDROCORTISONE ACETATE
     Route: 048
  179. HYDROCORTISONE ACETATE [Suspect]
     Active Substance: HYDROCORTISONE ACETATE
     Route: 048
  180. HYDROCORTISONE ACETATE [Suspect]
     Active Substance: HYDROCORTISONE ACETATE
     Route: 048
  181. HYDROCORTISONE ACETATE [Suspect]
     Active Substance: HYDROCORTISONE ACETATE
     Route: 048
  182. HYDROCORTISONE ACETATE [Suspect]
     Active Substance: HYDROCORTISONE ACETATE
     Indication: Colitis ulcerative
     Route: 048
  183. HYDROCORTISONE ACETATE [Suspect]
     Active Substance: HYDROCORTISONE ACETATE
     Route: 048
  184. HYDROCORTISONE ACETATE [Suspect]
     Active Substance: HYDROCORTISONE ACETATE
     Route: 048
  185. HYDROCORTISONE ACETATE [Suspect]
     Active Substance: HYDROCORTISONE ACETATE
     Route: 048
  186. HYDROCORTISONE ACETATE [Suspect]
     Active Substance: HYDROCORTISONE ACETATE
     Route: 048
  187. HYDROCORTISONE ACETATE [Suspect]
     Active Substance: HYDROCORTISONE ACETATE
     Route: 048
  188. HYDROCORTISONE ACETATE [Suspect]
     Active Substance: HYDROCORTISONE ACETATE
     Route: 048
  189. HYDROCORTISONE ACETATE [Suspect]
     Active Substance: HYDROCORTISONE ACETATE
     Route: 048
  190. HYDROCORTISONE ACETATE [Suspect]
     Active Substance: HYDROCORTISONE ACETATE
     Route: 048
  191. HYDROCORTISONE ACETATE [Suspect]
     Active Substance: HYDROCORTISONE ACETATE
     Route: 048
  192. HYDROCORTISONE ACETATE [Suspect]
     Active Substance: HYDROCORTISONE ACETATE
     Route: 048
  193. HYDROCORTISONE ACETATE [Suspect]
     Active Substance: HYDROCORTISONE ACETATE
     Route: 048
  194. CORTISONE [Suspect]
     Active Substance: CORTISONE
     Indication: Crohn^s disease
     Route: 048
  195. CORTISONE [Suspect]
     Active Substance: CORTISONE
     Route: 048
  196. CORTISONE [Suspect]
     Active Substance: CORTISONE
     Dosage: 8 DF, QD
     Route: 048
  197. CORTISONE [Suspect]
     Active Substance: CORTISONE
     Route: 048
  198. CORTISONE [Suspect]
     Active Substance: CORTISONE
     Route: 048
  199. CORTISONE [Suspect]
     Active Substance: CORTISONE
     Route: 048
  200. CORTISONE [Suspect]
     Active Substance: CORTISONE
     Route: 048
  201. CORTISONE [Suspect]
     Active Substance: CORTISONE
     Route: 042
  202. CORTISONE [Suspect]
     Active Substance: CORTISONE
     Route: 048
  203. CORTISONE [Suspect]
     Active Substance: CORTISONE
     Indication: Colitis ulcerative
     Route: 065
  204. CORTISONE [Suspect]
     Active Substance: CORTISONE
     Route: 065
  205. CORTISONE [Suspect]
     Active Substance: CORTISONE
     Route: 065
  206. CORTISONE [Suspect]
     Active Substance: CORTISONE
     Route: 065
  207. CORTISONE [Suspect]
     Active Substance: CORTISONE
     Route: 065
  208. CORTISONE [Suspect]
     Active Substance: CORTISONE
     Route: 065
  209. CORTISONE [Suspect]
     Active Substance: CORTISONE
     Route: 065
  210. DAPAGLIFLOZIN [Suspect]
     Active Substance: DAPAGLIFLOZIN
     Indication: Ill-defined disorder
     Route: 065
  211. DAPAGLIFLOZIN [Suspect]
     Active Substance: DAPAGLIFLOZIN
     Route: 065
  212. DAPAGLIFLOZIN [Suspect]
     Active Substance: DAPAGLIFLOZIN
     Route: 065
  213. DESOXIMETASONE [Suspect]
     Active Substance: DESOXIMETASONE
     Route: 065
  214. DESOXIMETASONE [Suspect]
     Active Substance: DESOXIMETASONE
     Route: 065
  215. DESOXIMETASONE [Suspect]
     Active Substance: DESOXIMETASONE
     Indication: Colitis ulcerative
     Route: 048
  216. DESOXIMETASONE [Suspect]
     Active Substance: DESOXIMETASONE
     Indication: Crohn^s disease
     Route: 048
  217. DESOXIMETASONE [Suspect]
     Active Substance: DESOXIMETASONE
     Route: 048
  218. ESCITALOPRAM [Suspect]
     Active Substance: ESCITALOPRAM OXALATE
     Indication: Product used for unknown indication
     Route: 065
  219. ESOMEPRAZOLE [Suspect]
     Active Substance: ESOMEPRAZOLE
     Indication: Gastritis
     Route: 048
  220. ENTYVIO [Suspect]
     Active Substance: VEDOLIZUMAB
     Dosage: 1 DF, QD
     Route: 048
  221. ENTYVIO [Suspect]
     Active Substance: VEDOLIZUMAB
     Dosage: 1 DF, QD
     Route: 048
  222. ENTYVIO [Suspect]
     Active Substance: VEDOLIZUMAB
     Dosage: 1 DF, QD
     Route: 048
  223. ENTYVIO [Suspect]
     Active Substance: VEDOLIZUMAB
     Dosage: 1 DF, QD
     Route: 048
  224. ENTYVIO [Suspect]
     Active Substance: VEDOLIZUMAB
     Dosage: 1 DF, QD
     Route: 048
  225. ENTYVIO [Suspect]
     Active Substance: VEDOLIZUMAB
     Dosage: 1 DF, QD
     Route: 048
  226. ENTYVIO [Suspect]
     Active Substance: VEDOLIZUMAB
     Route: 065
  227. ENTYVIO [Suspect]
     Active Substance: VEDOLIZUMAB
     Dosage: 8 DF, QD
     Route: 048
  228. ENTYVIO [Suspect]
     Active Substance: VEDOLIZUMAB
     Route: 065
  229. ENTYVIO [Suspect]
     Active Substance: VEDOLIZUMAB
     Dosage: UNK, QD
     Route: 065
  230. ENTYVIO [Suspect]
     Active Substance: VEDOLIZUMAB
     Indication: Colitis ulcerative
     Route: 048
  231. ENTYVIO [Suspect]
     Active Substance: VEDOLIZUMAB
     Indication: Deep vein thrombosis
     Route: 065
  232. ENTYVIO [Suspect]
     Active Substance: VEDOLIZUMAB
     Indication: Deep vein thrombosis
     Route: 042
  233. ENTYVIO [Suspect]
     Active Substance: VEDOLIZUMAB
     Indication: Colitis ulcerative
     Route: 048
  234. ENTYVIO [Suspect]
     Active Substance: VEDOLIZUMAB
     Route: 065
  235. ENTYVIO [Suspect]
     Active Substance: VEDOLIZUMAB
     Indication: Colitis ulcerative
     Route: 042
  236. ENTYVIO [Suspect]
     Active Substance: VEDOLIZUMAB
     Route: 042
  237. ENTYVIO [Suspect]
     Active Substance: VEDOLIZUMAB
     Route: 042
  238. ENTYVIO [Suspect]
     Active Substance: VEDOLIZUMAB
     Route: 042
  239. ENTYVIO [Suspect]
     Active Substance: VEDOLIZUMAB
     Route: 042
  240. ENTYVIO [Suspect]
     Active Substance: VEDOLIZUMAB
     Route: 042
  241. ENTYVIO [Suspect]
     Active Substance: VEDOLIZUMAB
     Route: 042
  242. ENTYVIO [Suspect]
     Active Substance: VEDOLIZUMAB
     Route: 042
  243. ENTYVIO [Suspect]
     Active Substance: VEDOLIZUMAB
     Route: 042
  244. ENTYVIO [Suspect]
     Active Substance: VEDOLIZUMAB
     Route: 042
  245. ENTYVIO [Suspect]
     Active Substance: VEDOLIZUMAB
     Route: 042
  246. ENTYVIO [Suspect]
     Active Substance: VEDOLIZUMAB
     Route: 048
  247. ENTYVIO [Suspect]
     Active Substance: VEDOLIZUMAB
     Indication: Deep vein thrombosis
     Route: 065
  248. EPINEPHRINE HYDROCHLORIDE [Suspect]
     Active Substance: EPINEPHRINE HYDROCHLORIDE
     Indication: Product used for unknown indication
     Route: 065
  249. FELODIPINE [Suspect]
     Active Substance: FELODIPINE
     Dosage: 3 MG, QD
     Route: 048
  250. FELODIPINE [Suspect]
     Active Substance: FELODIPINE
     Indication: Hypertension
     Dosage: 5 MG, QD
     Route: 048
  251. FUROSEMIDE [Suspect]
     Active Substance: FUROSEMIDE
     Indication: Product used for unknown indication
     Route: 065
  252. GABAPENTIN [Suspect]
     Active Substance: GABAPENTIN
     Route: 065
  253. GABAPENTIN [Suspect]
     Active Substance: GABAPENTIN
     Route: 065
  254. GABAPENTIN [Suspect]
     Active Substance: GABAPENTIN
     Route: 065
  255. GABAPENTIN [Suspect]
     Active Substance: GABAPENTIN
     Indication: Product used for unknown indication
     Dosage: 900 MG, QD
     Route: 065
  256. GABAPENTIN [Suspect]
     Active Substance: GABAPENTIN
     Dosage: 900 MG, QD
     Route: 065
  257. HYDROCORTISONE [Suspect]
     Active Substance: HYDROCORTISONE
     Route: 048
  258. HYDROCORTISONE [Suspect]
     Active Substance: HYDROCORTISONE
     Route: 048
  259. HYDROCORTISONE [Suspect]
     Active Substance: HYDROCORTISONE
     Route: 048
  260. HYDROCORTISONE [Suspect]
     Active Substance: HYDROCORTISONE
     Indication: Colitis ulcerative
     Route: 065
  261. HYDROCORTISONE [Suspect]
     Active Substance: HYDROCORTISONE
     Route: 065
  262. HYDROCORTISONE [Suspect]
     Active Substance: HYDROCORTISONE
     Dosage: 8 DF, QD
     Route: 048
  263. HYDROCORTISONE [Suspect]
     Active Substance: HYDROCORTISONE
     Route: 048
  264. HYDROCORTISONE [Suspect]
     Active Substance: HYDROCORTISONE
     Route: 048
  265. HYDROCORTISONE [Suspect]
     Active Substance: HYDROCORTISONE
     Route: 048
  266. HYDROCORTISONE [Suspect]
     Active Substance: HYDROCORTISONE
     Route: 048
  267. HUMIRA [Suspect]
     Active Substance: ADALIMUMAB
     Indication: Crohn^s disease
     Route: 048
  268. HUMIRA [Suspect]
     Active Substance: ADALIMUMAB
     Route: 048
  269. HUMIRA [Suspect]
     Active Substance: ADALIMUMAB
     Route: 048
  270. HUMIRA [Suspect]
     Active Substance: ADALIMUMAB
     Indication: Deep vein thrombosis
     Route: 058
  271. HUMIRA [Suspect]
     Active Substance: ADALIMUMAB
     Indication: Colitis ulcerative
     Route: 065
  272. HUMIRA [Suspect]
     Active Substance: ADALIMUMAB
     Route: 065
  273. HUMIRA [Suspect]
     Active Substance: ADALIMUMAB
     Route: 048
  274. HUMIRA [Suspect]
     Active Substance: ADALIMUMAB
     Route: 048
  275. HUMIRA [Suspect]
     Active Substance: ADALIMUMAB
     Route: 065
  276. INFLIXIMAB [Suspect]
     Active Substance: INFLIXIMAB
     Indication: Colitis ulcerative
     Route: 042
  277. INFLIXIMAB [Suspect]
     Active Substance: INFLIXIMAB
     Indication: Crohn^s disease
     Route: 042
  278. INFLIXIMAB [Suspect]
     Active Substance: INFLIXIMAB
     Route: 042
  279. INFLIXIMAB [Suspect]
     Active Substance: INFLIXIMAB
     Route: 042
  280. INFLIXIMAB [Suspect]
     Active Substance: INFLIXIMAB
     Route: 042
  281. INFLIXIMAB [Suspect]
     Active Substance: INFLIXIMAB
     Route: 042
  282. INFLIXIMAB [Suspect]
     Active Substance: INFLIXIMAB
     Route: 042
  283. INFLIXIMAB [Suspect]
     Active Substance: INFLIXIMAB
     Route: 042
  284. INFLIXIMAB [Suspect]
     Active Substance: INFLIXIMAB
     Route: 042
  285. INFLIXIMAB [Suspect]
     Active Substance: INFLIXIMAB
     Route: 042
  286. INFLIXIMAB [Suspect]
     Active Substance: INFLIXIMAB
     Route: 042
  287. INFLIXIMAB [Suspect]
     Active Substance: INFLIXIMAB
     Route: 042
  288. INFLIXIMAB [Suspect]
     Active Substance: INFLIXIMAB
     Route: 042
  289. INFLIXIMAB [Suspect]
     Active Substance: INFLIXIMAB
     Route: 042
  290. INFLIXIMAB [Suspect]
     Active Substance: INFLIXIMAB
     Route: 042
  291. INFLIXIMAB [Suspect]
     Active Substance: INFLIXIMAB
     Route: 042
  292. INFLIXIMAB [Suspect]
     Active Substance: INFLIXIMAB
     Route: 042
  293. INFLIXIMAB [Suspect]
     Active Substance: INFLIXIMAB
     Route: 042
  294. INFLIXIMAB [Suspect]
     Active Substance: INFLIXIMAB
     Route: 042
  295. INFLIXIMAB [Suspect]
     Active Substance: INFLIXIMAB
     Route: 042
  296. INFLIXIMAB [Suspect]
     Active Substance: INFLIXIMAB
     Route: 042
  297. INFLIXIMAB [Suspect]
     Active Substance: INFLIXIMAB
     Route: 042
  298. INFLIXIMAB [Suspect]
     Active Substance: INFLIXIMAB
     Route: 042
  299. INFLIXIMAB [Suspect]
     Active Substance: INFLIXIMAB
     Route: 042
  300. INFLIXIMAB [Suspect]
     Active Substance: INFLIXIMAB
     Route: 042
  301. INFLIXIMAB [Suspect]
     Active Substance: INFLIXIMAB
     Route: 042
  302. INFLIXIMAB [Suspect]
     Active Substance: INFLIXIMAB
     Route: 042
  303. INFLIXIMAB [Suspect]
     Active Substance: INFLIXIMAB
     Route: 042
  304. INFLIXIMAB [Suspect]
     Active Substance: INFLIXIMAB
     Route: 042
  305. INFLIXIMAB [Suspect]
     Active Substance: INFLIXIMAB
     Route: 042
  306. INFLIXIMAB [Suspect]
     Active Substance: INFLIXIMAB
     Route: 042
  307. INFLIXIMAB [Suspect]
     Active Substance: INFLIXIMAB
     Route: 042
  308. INFLIXIMAB [Suspect]
     Active Substance: INFLIXIMAB
     Route: 042
  309. INFLIXIMAB [Suspect]
     Active Substance: INFLIXIMAB
     Route: 042
  310. INFLIXIMAB [Suspect]
     Active Substance: INFLIXIMAB
     Route: 042
  311. INFLIXIMAB [Suspect]
     Active Substance: INFLIXIMAB
     Route: 042
  312. INFLIXIMAB [Suspect]
     Active Substance: INFLIXIMAB
     Route: 065
  313. INFLIXIMAB [Suspect]
     Active Substance: INFLIXIMAB
     Route: 065
  314. INFLIXIMAB [Suspect]
     Active Substance: INFLIXIMAB
     Route: 065
  315. INFLIXIMAB [Suspect]
     Active Substance: INFLIXIMAB
     Route: 065
  316. INFLIXIMAB [Suspect]
     Active Substance: INFLIXIMAB
     Route: 065
  317. INFLIXIMAB [Suspect]
     Active Substance: INFLIXIMAB
     Route: 065
  318. INFLIXIMAB [Suspect]
     Active Substance: INFLIXIMAB
     Route: 065
  319. INFLIXIMAB [Suspect]
     Active Substance: INFLIXIMAB
     Route: 065
  320. INFLIXIMAB [Suspect]
     Active Substance: INFLIXIMAB
     Route: 065
  321. INFLIXIMAB [Suspect]
     Active Substance: INFLIXIMAB
     Route: 065
  322. INFLIXIMAB [Suspect]
     Active Substance: INFLIXIMAB
     Route: 065
  323. INFLIXIMAB [Suspect]
     Active Substance: INFLIXIMAB
     Route: 065
  324. INFLIXIMAB [Suspect]
     Active Substance: INFLIXIMAB
     Route: 065
  325. INFLECTRA [Suspect]
     Active Substance: INFLIXIMAB-DYYB
     Indication: Crohn^s disease
     Route: 042
  326. INFLECTRA [Suspect]
     Active Substance: INFLIXIMAB-DYYB
     Route: 042
  327. INFLECTRA [Suspect]
     Active Substance: INFLIXIMAB-DYYB
     Route: 042
  328. INFLECTRA [Suspect]
     Active Substance: INFLIXIMAB-DYYB
     Route: 042
  329. INFLECTRA [Suspect]
     Active Substance: INFLIXIMAB-DYYB
     Route: 042
  330. INFLECTRA [Suspect]
     Active Substance: INFLIXIMAB-DYYB
     Route: 042
  331. INFLECTRA [Suspect]
     Active Substance: INFLIXIMAB-DYYB
     Route: 042
  332. INFLECTRA [Suspect]
     Active Substance: INFLIXIMAB-DYYB
     Route: 042
  333. INFLECTRA [Suspect]
     Active Substance: INFLIXIMAB-DYYB
     Route: 048
  334. INFLECTRA [Suspect]
     Active Substance: INFLIXIMAB-DYYB
     Route: 048
  335. INFLECTRA [Suspect]
     Active Substance: INFLIXIMAB-DYYB
     Route: 048
  336. INFLECTRA [Suspect]
     Active Substance: INFLIXIMAB-DYYB
     Route: 048
  337. INFLECTRA [Suspect]
     Active Substance: INFLIXIMAB-DYYB
     Indication: Colitis ulcerative
     Route: 065
  338. INFLECTRA [Suspect]
     Active Substance: INFLIXIMAB-DYYB
     Route: 065
  339. LEVOTHYROXINE SODIUM [Suspect]
     Active Substance: LEVOTHYROXINE SODIUM
     Indication: Product used for unknown indication
     Route: 065
  340. LEVOTHYROXINE SODIUM [Suspect]
     Active Substance: LEVOTHYROXINE SODIUM
     Route: 065
  341. LISDEXAMFETAMINE DIMESYLATE [Suspect]
     Active Substance: LISDEXAMFETAMINE DIMESYLATE
     Indication: Product used for unknown indication
     Route: 065
  342. MEBEVERINE HYDROCHLORIDE [Suspect]
     Active Substance: MEBEVERINE HYDROCHLORIDE
     Indication: Product used for unknown indication
     Route: 065
  343. MESALAMINE [Suspect]
     Active Substance: MESALAMINE
     Dosage: 2.4 G, QD
     Route: 065
  344. MESALAMINE [Suspect]
     Active Substance: MESALAMINE
     Dosage: 2.4 G, QD
     Route: 065
  345. MESALAMINE [Suspect]
     Active Substance: MESALAMINE
     Route: 065
  346. MESALAMINE [Suspect]
     Active Substance: MESALAMINE
     Route: 065
  347. MESALAMINE [Suspect]
     Active Substance: MESALAMINE
     Route: 065
  348. MESALAMINE [Suspect]
     Active Substance: MESALAMINE
     Route: 065
  349. MESALAMINE [Suspect]
     Active Substance: MESALAMINE
     Route: 065
  350. MESALAMINE [Suspect]
     Active Substance: MESALAMINE
     Route: 065
  351. MESALAMINE [Suspect]
     Active Substance: MESALAMINE
     Route: 065
  352. MESALAMINE [Suspect]
     Active Substance: MESALAMINE
     Dosage: 4.8 MG, QD
     Route: 065
  353. MESALAMINE [Suspect]
     Active Substance: MESALAMINE
     Route: 065
  354. MESALAMINE [Suspect]
     Active Substance: MESALAMINE
     Route: 065
  355. MESALAMINE [Suspect]
     Active Substance: MESALAMINE
     Route: 065
  356. MESALAMINE [Suspect]
     Active Substance: MESALAMINE
     Route: 065
  357. MESALAMINE [Suspect]
     Active Substance: MESALAMINE
     Route: 065
  358. MESALAMINE [Suspect]
     Active Substance: MESALAMINE
     Route: 048
  359. MESALAMINE [Suspect]
     Active Substance: MESALAMINE
     Route: 048
  360. MESALAMINE [Suspect]
     Active Substance: MESALAMINE
     Route: 048
  361. MESALAMINE [Suspect]
     Active Substance: MESALAMINE
     Indication: Colitis ulcerative
     Route: 065
  362. MESALAMINE [Suspect]
     Active Substance: MESALAMINE
     Route: 065
  363. MESALAMINE [Suspect]
     Active Substance: MESALAMINE
     Route: 065
  364. MESALAMINE [Suspect]
     Active Substance: MESALAMINE
     Route: 065
  365. MESALAMINE [Suspect]
     Active Substance: MESALAMINE
     Route: 065
  366. MESALAMINE [Suspect]
     Active Substance: MESALAMINE
     Route: 065
  367. MESALAMINE [Suspect]
     Active Substance: MESALAMINE
     Route: 065
  368. MESALAMINE [Suspect]
     Active Substance: MESALAMINE
     Route: 065
  369. MESALAMINE [Suspect]
     Active Substance: MESALAMINE
     Route: 065
  370. MESALAMINE [Suspect]
     Active Substance: MESALAMINE
     Route: 065
  371. METFORMIN [Suspect]
     Active Substance: METFORMIN HYDROCHLORIDE
     Indication: Product used for unknown indication
     Route: 065
  372. METFORMIN [Suspect]
     Active Substance: METFORMIN HYDROCHLORIDE
     Route: 065
  373. OMEPRAZOLE [Suspect]
     Active Substance: OMEPRAZOLE
     Indication: Gastritis
     Route: 065
  374. OMEPRAZOLE [Suspect]
     Active Substance: OMEPRAZOLE
     Route: 065
  375. OXYCODONE [Suspect]
     Active Substance: OXYCODONE
     Indication: Product used for unknown indication
     Route: 065
  376. OXYCODONE HYDROCHLORIDE [Suspect]
     Active Substance: OXYCODONE HYDROCHLORIDE
     Dosage: 10 MG, QD
     Route: 065
  377. OXYCODONE HYDROCHLORIDE [Suspect]
     Active Substance: OXYCODONE HYDROCHLORIDE
     Indication: Product used for unknown indication
     Dosage: 5 MG, QD
     Route: 065
  378. PARA-AMINOSALICYLIC ACID [Suspect]
     Active Substance: AMINOSALICYLIC ACID
     Indication: Product used for unknown indication
     Route: 048
  379. PREDNISONE [Suspect]
     Active Substance: PREDNISONE
     Route: 065
  380. PREDNISONE [Suspect]
     Active Substance: PREDNISONE
     Indication: Colitis ulcerative
     Route: 065
  381. PREDNISONE [Suspect]
     Active Substance: PREDNISONE
     Route: 065
  382. PREDNISONE [Suspect]
     Active Substance: PREDNISONE
     Route: 065
  383. PREDNISONE [Suspect]
     Active Substance: PREDNISONE
     Route: 065
  384. PREDNISONE [Suspect]
     Active Substance: PREDNISONE
     Route: 065
  385. PREDNISONE [Suspect]
     Active Substance: PREDNISONE
     Route: 065
  386. ROSUVASTATIN [Suspect]
     Active Substance: ROSUVASTATIN
     Indication: Ill-defined disorder
     Route: 065
  387. ROSUVASTATIN [Suspect]
     Active Substance: ROSUVASTATIN
     Indication: Blood cholesterol increased
  388. ROSUVASTATIN CALCIUM [Suspect]
     Active Substance: ROSUVASTATIN CALCIUM
     Indication: Ill-defined disorder
     Route: 065
  389. ROSUVASTATIN CALCIUM [Suspect]
     Active Substance: ROSUVASTATIN CALCIUM
     Indication: Blood cholesterol increased
     Route: 065
  390. ROSUVASTATIN CALCIUM [Suspect]
     Active Substance: ROSUVASTATIN CALCIUM
     Route: 065
  391. ROSUVASTATIN CALCIUM [Suspect]
     Active Substance: ROSUVASTATIN CALCIUM
     Route: 065
  392. MESALAMINE [Suspect]
     Active Substance: MESALAMINE
     Indication: Product used for unknown indication
     Route: 065
  393. SULFASALAZINE [Suspect]
     Active Substance: SULFASALAZINE
     Dosage: 3 MG, QD
     Route: 048
  394. SULFASALAZINE [Suspect]
     Active Substance: SULFASALAZINE
     Dosage: 3 MG, QD
     Route: 065
  395. SULFASALAZINE [Suspect]
     Active Substance: SULFASALAZINE
     Dosage: 3 MG, QD
     Route: 065
  396. SULFASALAZINE [Suspect]
     Active Substance: SULFASALAZINE
     Dosage: 3 MG, QD
     Route: 065
  397. SULFASALAZINE [Suspect]
     Active Substance: SULFASALAZINE
     Route: 048
  398. SULFASALAZINE [Suspect]
     Active Substance: SULFASALAZINE
     Route: 048
  399. SULFASALAZINE [Suspect]
     Active Substance: SULFASALAZINE
     Route: 048
  400. SULFASALAZINE [Suspect]
     Active Substance: SULFASALAZINE
     Route: 048
  401. SULFASALAZINE [Suspect]
     Active Substance: SULFASALAZINE
     Route: 048
  402. SULFASALAZINE [Suspect]
     Active Substance: SULFASALAZINE
     Route: 048
  403. SULFASALAZINE [Suspect]
     Active Substance: SULFASALAZINE
     Indication: Colitis ulcerative
     Route: 065
  404. SULFASALAZINE [Suspect]
     Active Substance: SULFASALAZINE
     Route: 065
  405. SULFASALAZINE [Suspect]
     Active Substance: SULFASALAZINE
     Route: 065
  406. SULFASALAZINE [Suspect]
     Active Substance: SULFASALAZINE
     Route: 065
  407. SULFASALAZINE [Suspect]
     Active Substance: SULFASALAZINE
     Route: 065
  408. SULFASALAZINE [Suspect]
     Active Substance: SULFASALAZINE
     Route: 065
  409. SULFASALAZINE [Suspect]
     Active Substance: SULFASALAZINE
     Route: 065
  410. SULFASALAZINE [Suspect]
     Active Substance: SULFASALAZINE
     Route: 065
  411. SULFASALAZINE [Suspect]
     Active Substance: SULFASALAZINE
     Route: 065
  412. SULFASALAZINE [Suspect]
     Active Substance: SULFASALAZINE
     Route: 065
  413. TOZINAMERAN [Suspect]
     Active Substance: TOZINAMERAN
     Indication: Product used for unknown indication
     Route: 065
  414. VITAMIN D3 [Suspect]
     Active Substance: CHOLECALCIFEROL
     Indication: Product used for unknown indication
     Route: 065
  415. VITAMIN D3 [Suspect]
     Active Substance: CHOLECALCIFEROL
     Route: 065
  416. VYVANSE [Suspect]
     Active Substance: LISDEXAMFETAMINE DIMESYLATE
     Indication: Attention deficit hyperactivity disorder
     Route: 065
  417. WARFARIN [Suspect]
     Active Substance: WARFARIN
     Indication: Colitis ulcerative
     Route: 048
  418. WARFARIN [Suspect]
     Active Substance: WARFARIN
     Indication: Deep vein thrombosis
     Route: 048
  419. WARFARIN [Suspect]
     Active Substance: WARFARIN
     Route: 048
  420. WARFARIN [Suspect]
     Active Substance: WARFARIN
     Route: 048
  421. WARFARIN [Suspect]
     Active Substance: WARFARIN
     Route: 048
  422. WARFARIN [Suspect]
     Active Substance: WARFARIN
     Route: 048
  423. WARFARIN [Suspect]
     Active Substance: WARFARIN
     Route: 048
  424. WARFARIN [Suspect]
     Active Substance: WARFARIN
     Route: 048
  425. WARFARIN [Suspect]
     Active Substance: WARFARIN
     Route: 048
  426. WARFARIN [Suspect]
     Active Substance: WARFARIN
     Route: 048
  427. WARFARIN [Suspect]
     Active Substance: WARFARIN
     Route: 048
  428. WARFARIN [Suspect]
     Active Substance: WARFARIN
     Route: 048
  429. WARFARIN SODIUM [Suspect]
     Active Substance: WARFARIN SODIUM
     Indication: Colitis ulcerative
     Route: 048
  430. WARFARIN SODIUM [Suspect]
     Active Substance: WARFARIN SODIUM
     Route: 048
  431. WARFARIN SODIUM [Suspect]
     Active Substance: WARFARIN SODIUM
     Route: 048
  432. WARFARIN SODIUM [Suspect]
     Active Substance: WARFARIN SODIUM
     Route: 048
  433. WARFARIN SODIUM [Suspect]
     Active Substance: WARFARIN SODIUM
     Route: 048
  434. WARFARIN SODIUM [Suspect]
     Active Substance: WARFARIN SODIUM
     Route: 048
  435. WARFARIN SODIUM [Suspect]
     Active Substance: WARFARIN SODIUM
     Indication: Deep vein thrombosis
     Route: 048
  436. WARFARIN SODIUM [Suspect]
     Active Substance: WARFARIN SODIUM
     Route: 048
  437. WARFARIN SODIUM [Suspect]
     Active Substance: WARFARIN SODIUM
     Route: 048
  438. WARFARIN SODIUM [Suspect]
     Active Substance: WARFARIN SODIUM
     Route: 048
  439. WARFARIN SODIUM [Suspect]
     Active Substance: WARFARIN SODIUM
     Route: 048
  440. WARFARIN SODIUM [Suspect]
     Active Substance: WARFARIN SODIUM
     Route: 048
  441. WARFARIN SODIUM [Suspect]
     Active Substance: WARFARIN SODIUM
     Route: 048
  442. WARFARIN SODIUM [Suspect]
     Active Substance: WARFARIN SODIUM
     Route: 048
  443. WARFARIN SODIUM [Suspect]
     Active Substance: WARFARIN SODIUM
     Route: 048
  444. WARFARIN SODIUM [Suspect]
     Active Substance: WARFARIN SODIUM
     Route: 048
  445. WARFARIN SODIUM [Suspect]
     Active Substance: WARFARIN SODIUM
     Route: 048
  446. WARFARIN SODIUM [Suspect]
     Active Substance: WARFARIN SODIUM
     Route: 048
  447. WARFARIN SODIUM [Suspect]
     Active Substance: WARFARIN SODIUM
     Route: 048
  448. WARFARIN SODIUM [Suspect]
     Active Substance: WARFARIN SODIUM
     Route: 048
  449. WARFARIN SODIUM [Suspect]
     Active Substance: WARFARIN SODIUM
     Route: 048
  450. WARFARIN SODIUM [Suspect]
     Active Substance: WARFARIN SODIUM
     Route: 048
  451. WARFARIN SODIUM [Suspect]
     Active Substance: WARFARIN SODIUM
     Route: 048
  452. WARFARIN SODIUM [Suspect]
     Active Substance: WARFARIN SODIUM
     Route: 048
  453. ACETAMINOPHEN [Concomitant]
     Active Substance: ACETAMINOPHEN
     Indication: Product used for unknown indication
     Route: 065
  454. ACETAMINOPHEN [Concomitant]
     Active Substance: ACETAMINOPHEN
     Indication: Product used for unknown indication
     Route: 065
  455. ALGINIC ACID\ALUMINUM HYDROXIDE\MAGNESIUM TRISILICATE\SODIUM BICARBONA [Concomitant]
     Active Substance: ALGINIC ACID\ALUMINUM HYDROXIDE\MAGNESIUM TRISILICATE\SODIUM BICARBONATE
     Indication: Product used for unknown indication
     Route: 065
  456. AMLODIPINE BESYLATE [Concomitant]
     Active Substance: AMLODIPINE BESYLATE
     Indication: Product used for unknown indication
     Route: 065
  457. AMLODIPINE BESYLATE [Concomitant]
     Active Substance: AMLODIPINE BESYLATE
     Route: 065
  458. AMLODIPINE BESYLATE [Concomitant]
     Active Substance: AMLODIPINE BESYLATE
     Route: 065
  459. ATORVASTATIN CALCIUM [Concomitant]
     Active Substance: ATORVASTATIN CALCIUM
     Indication: Product used for unknown indication
     Route: 065
  460. ATORVASTATIN CALCIUM [Concomitant]
     Active Substance: ATORVASTATIN CALCIUM
     Route: 065
  461. ATORVASTATIN CALCIUM [Concomitant]
     Active Substance: ATORVASTATIN CALCIUM
     Route: 065
  462. BETNOVATE [Concomitant]
     Active Substance: BETAMETHASONE
     Indication: Ill-defined disorder
     Route: 065
  463. BISOPROLOL [Concomitant]
     Active Substance: BISOPROLOL
     Indication: Dyscalculia
     Route: 065
  464. BISOPROLOL [Concomitant]
     Active Substance: BISOPROLOL
     Indication: Ill-defined disorder
     Route: 065
  465. BISOPROLOL [Concomitant]
     Active Substance: BISOPROLOL
     Route: 065
  466. BISOPROLOL [Concomitant]
     Active Substance: BISOPROLOL
     Route: 065
  467. CALCIUM CARBONATE\CHOLECALCIFEROL [Concomitant]
     Active Substance: CALCIUM CARBONATE\CHOLECALCIFEROL
     Indication: Product used for unknown indication
     Route: 065
  468. CALCIUM CARBONATE;MAGNESIUM CARBONATE [Concomitant]
     Indication: Product used for unknown indication
     Route: 065
  469. CALCIUM CARBONATE;SODIUM ALGINATE [Concomitant]
     Indication: Product used for unknown indication
     Route: 065
  470. CALCIUM CARBONATE;SODIUM ALGINATE;SODIUM BICARBONATE [Concomitant]
     Indication: Product used for unknown indication
     Route: 065
  471. CALCIUM CARBONATE;SODIUM ALGINATE;SODIUM BICARBONATE [Concomitant]
     Route: 065
  472. CALCIUM CARBONATE;SODIUM ALGINATE;SODIUM BICARBONATE [Concomitant]
     Route: 065
  473. CALCIUM CARBONATE;SODIUM ALGINATE;SODIUM BICARBONATE [Concomitant]
     Route: 065
  474. CALCIUM CARBONATE;SODIUM ALGINATE;SODIUM BICARBONATE [Concomitant]
     Route: 065
  475. CITALOPRAM HYDROBROMIDE [Concomitant]
     Active Substance: CITALOPRAM HYDROBROMIDE
     Indication: Ill-defined disorder
     Route: 065
  476. CITALOPRAM HYDROBROMIDE [Concomitant]
     Active Substance: CITALOPRAM HYDROBROMIDE
     Indication: Ill-defined disorder
     Route: 065
  477. CITALOPRAM HYDROBROMIDE [Concomitant]
     Active Substance: CITALOPRAM HYDROBROMIDE
     Indication: Ill-defined disorder
     Route: 065
  478. CITALOPRAM HYDROBROMIDE [Concomitant]
     Active Substance: CITALOPRAM HYDROBROMIDE
     Indication: Ill-defined disorder
     Route: 065
  479. CLOBETASONE BUTYRATE [Concomitant]
     Active Substance: CLOBETASONE BUTYRATE
     Indication: Ill-defined disorder
     Route: 065
  480. CLOBETASONE BUTYRATE [Concomitant]
     Active Substance: CLOBETASONE BUTYRATE
     Indication: Ill-defined disorder
     Route: 065
  481. DAPAGLIFLOZIN [Concomitant]
     Active Substance: DAPAGLIFLOZIN
     Indication: Product used for unknown indication
     Route: 065
  482. DAPAGLIFLOZIN [Concomitant]
     Active Substance: DAPAGLIFLOZIN
     Indication: Product used for unknown indication
     Route: 065
  483. DORZOLAMIDE HYDROCHLORIDE [Concomitant]
     Active Substance: DORZOLAMIDE HYDROCHLORIDE
     Route: 047
  484. DORZOLAMIDE HYDROCHLORIDE [Concomitant]
     Active Substance: DORZOLAMIDE HYDROCHLORIDE
     Indication: Ill-defined disorder
     Route: 065
  485. DORZOLAMIDE HYDROCHLORIDE [Concomitant]
     Active Substance: DORZOLAMIDE HYDROCHLORIDE
     Indication: Product used for unknown indication
     Route: 065
  486. DORZOLAMIDE HYDROCHLORIDE [Concomitant]
     Active Substance: DORZOLAMIDE HYDROCHLORIDE
     Route: 065
  487. EMPAGLIFLOZIN [Concomitant]
     Active Substance: EMPAGLIFLOZIN
     Route: 042
  488. EMPAGLIFLOZIN [Concomitant]
     Active Substance: EMPAGLIFLOZIN
     Indication: Ill-defined disorder
     Route: 065
  489. FESOTERODINE FUMARATE [Concomitant]
     Active Substance: FESOTERODINE FUMARATE
     Indication: Ill-defined disorder
     Route: 065
  490. FOLIC ACID [Concomitant]
     Active Substance: FOLIC ACID
     Indication: Product used for unknown indication
     Route: 065
  491. FOLIC ACID [Concomitant]
     Active Substance: FOLIC ACID
     Indication: Product used for unknown indication
     Route: 065
  492. LANSOPRAZOLE [Concomitant]
     Active Substance: LANSOPRAZOLE
     Indication: Ill-defined disorder
     Route: 065
  493. LATANOPROST [Concomitant]
     Active Substance: LATANOPROST
     Indication: Product used for unknown indication
     Route: 047
  494. LYRICA [Concomitant]
     Active Substance: PREGABALIN
     Indication: Ill-defined disorder
     Route: 065
  495. LYRICA [Concomitant]
     Active Substance: PREGABALIN
     Indication: Ill-defined disorder
     Route: 065
  496. POLYETHYLENE GLYCOLS [Concomitant]
     Active Substance: POLYETHYLENE GLYCOLS
     Indication: Product used for unknown indication
     Route: 065
  497. POLYETHYLENE GLYCOLS [Concomitant]
     Active Substance: POLYETHYLENE GLYCOLS
     Indication: Product used for unknown indication
     Route: 065
  498. POLYETHYLENE GLYCOL 3350\POTASSIUM CHLORIDE\SODIUM BICARBONATE\SODIUM [Concomitant]
     Active Substance: POLYETHYLENE GLYCOL 3350\POTASSIUM CHLORIDE\SODIUM BICARBONATE\SODIUM CHLORIDE
     Indication: Product used for unknown indication
     Route: 065
  499. METHOTREXATE [Concomitant]
     Active Substance: METHOTREXATE
     Indication: Colitis ulcerative
     Route: 065
  500. METHOTREXATE [Concomitant]
     Active Substance: METHOTREXATE
     Route: 065
  501. METHOTREXATE [Concomitant]
     Active Substance: METHOTREXATE
     Route: 065
  502. MINERAL OIL [Concomitant]
     Active Substance: MINERAL OIL
     Indication: Ill-defined disorder
     Route: 065
  503. NAPHAZOLINE HYDROCHLORIDE [Concomitant]
     Active Substance: NAPHAZOLINE HYDROCHLORIDE
     Indication: Ill-defined disorder
     Route: 065
  504. NAPHAZOLINE HYDROCHLORIDE [Concomitant]
     Active Substance: NAPHAZOLINE HYDROCHLORIDE
     Indication: Ill-defined disorder
     Route: 065
  505. NITROFURANTOIN [Concomitant]
     Active Substance: NITROFURANTOIN
     Indication: Ill-defined disorder
     Route: 065
  506. NITROFURANTOIN [Concomitant]
     Active Substance: NITROFURANTOIN
     Indication: Ill-defined disorder
     Route: 065
  507. OMEPRAZOLE [Concomitant]
     Active Substance: OMEPRAZOLE
     Indication: Gastritis
     Route: 065
  508. OMEPRAZOLE [Concomitant]
     Active Substance: OMEPRAZOLE
     Indication: Gastritis
     Route: 065
  509. PARAFFIN [Concomitant]
     Active Substance: PARAFFIN
     Indication: Product used for unknown indication
     Route: 065
  510. PARAFFIN [Concomitant]
     Active Substance: PARAFFIN
     Indication: Product used for unknown indication
     Route: 065
  511. PRAVASTATIN [Concomitant]
     Active Substance: PRAVASTATIN
     Indication: Product used for unknown indication
     Route: 065
  512. PRAVASTATIN [Concomitant]
     Active Substance: PRAVASTATIN
     Indication: Product used for unknown indication
     Route: 065
  513. RAMIPRIL [Concomitant]
     Active Substance: RAMIPRIL
     Indication: Ill-defined disorder
     Route: 065
  514. RAMIPRIL [Concomitant]
     Active Substance: RAMIPRIL
     Indication: Ill-defined disorder
     Route: 065
  515. RIVAROXABAN [Concomitant]
     Active Substance: RIVAROXABAN
     Indication: Product used for unknown indication
     Route: 065
  516. RIVAROXABAN [Concomitant]
     Active Substance: RIVAROXABAN
     Indication: Product used for unknown indication
     Route: 065
  517. ROSUVASTATIN CALCIUM [Concomitant]
     Active Substance: ROSUVASTATIN CALCIUM
     Indication: Product used for unknown indication
     Route: 065
  518. ROSUVASTATIN CALCIUM [Concomitant]
     Active Substance: ROSUVASTATIN CALCIUM
     Indication: Product used for unknown indication
     Route: 065
  519. TAMSULOSIN HYDROCHLORIDE [Concomitant]
     Active Substance: TAMSULOSIN HYDROCHLORIDE
     Indication: Ill-defined disorder
     Route: 065
  520. TETRAHYDROZOLINE HYDROCHLORIDE [Concomitant]
     Active Substance: TETRAHYDROZOLINE HYDROCHLORIDE
     Indication: Product used for unknown indication
     Route: 065
  521. TETRAHYDROZOLINE HYDROCHLORIDE [Concomitant]
     Active Substance: TETRAHYDROZOLINE HYDROCHLORIDE
     Indication: Product used for unknown indication
     Route: 065
  522. TOFACITINIB CITRATE [Concomitant]
     Active Substance: TOFACITINIB CITRATE
     Indication: Product used for unknown indication
     Route: 065
  523. XELJANZ [Concomitant]
     Active Substance: TOFACITINIB CITRATE
     Route: 048
  524. XELJANZ [Concomitant]
     Active Substance: TOFACITINIB CITRATE
     Route: 048
  525. XELJANZ [Concomitant]
     Active Substance: TOFACITINIB CITRATE
     Indication: Colitis ulcerative
     Route: 048
  526. XELJANZ [Concomitant]
     Active Substance: TOFACITINIB CITRATE
     Route: 048
  527. XELJANZ [Concomitant]
     Active Substance: TOFACITINIB CITRATE
     Route: 048

REACTIONS (55)
  - Abdominal discomfort [Not Recovered/Not Resolved]
  - Adverse drug reaction [Not Recovered/Not Resolved]
  - Alcohol poisoning [Not Recovered/Not Resolved]
  - Arthritis [Not Recovered/Not Resolved]
  - Bronchiectasis [Not Recovered/Not Resolved]
  - Burns second degree [Not Recovered/Not Resolved]
  - COVID-19 [Not Recovered/Not Resolved]
  - Cardiac murmur [Not Recovered/Not Resolved]
  - Catarrh [Not Recovered/Not Resolved]
  - Cerebrovascular accident [Not Recovered/Not Resolved]
  - Colitis ulcerative [Not Recovered/Not Resolved]
  - Colitis ulcerative [Not Recovered/Not Resolved]
  - Condition aggravated [Not Recovered/Not Resolved]
  - Confusional state [Not Recovered/Not Resolved]
  - Deep vein thrombosis [Not Recovered/Not Resolved]
  - Depression [Not Recovered/Not Resolved]
  - Dysgeusia [Not Recovered/Not Resolved]
  - Eczema [Not Recovered/Not Resolved]
  - Fatigue [Not Recovered/Not Resolved]
  - Frequent bowel movements [Not Recovered/Not Resolved]
  - Gingival pain [Not Recovered/Not Resolved]
  - Haematochezia [Not Recovered/Not Resolved]
  - Headache [Not Recovered/Not Resolved]
  - Hypopnoea [Not Recovered/Not Resolved]
  - Impaired quality of life [Not Recovered/Not Resolved]
  - Impaired work ability [Not Recovered/Not Resolved]
  - Loss of personal independence in daily activities [Not Recovered/Not Resolved]
  - Loss of personal independence in daily activities [Not Recovered/Not Resolved]
  - Migraine [Not Recovered/Not Resolved]
  - Nightmare [Not Recovered/Not Resolved]
  - Pain [Not Recovered/Not Resolved]
  - Pain in extremity [Not Recovered/Not Resolved]
  - Palpitations [Not Recovered/Not Resolved]
  - Parosmia [Not Recovered/Not Resolved]
  - Pulmonary embolism [Not Recovered/Not Resolved]
  - Pyrexia [Not Recovered/Not Resolved]
  - Rash [Not Recovered/Not Resolved]
  - Rectal haemorrhage [Not Recovered/Not Resolved]
  - Rhinitis [Not Recovered/Not Resolved]
  - Somnolence [Not Recovered/Not Resolved]
  - Steroid dependence [Not Recovered/Not Resolved]
  - Stress [Not Recovered/Not Resolved]
  - Swollen tongue [Not Recovered/Not Resolved]
  - Systemic lupus erythematosus [Not Recovered/Not Resolved]
  - Weight decreased [Not Recovered/Not Resolved]
  - Tinnitus [Not Recovered/Not Resolved]
  - Tubulointerstitial nephritis [Not Recovered/Not Resolved]
  - Vertigo [Not Recovered/Not Resolved]
  - Accidental overdose [Not Recovered/Not Resolved]
  - Drug ineffective [Not Recovered/Not Resolved]
  - Inappropriate schedule of product administration [Not Recovered/Not Resolved]
  - Intentional product use issue [Not Recovered/Not Resolved]
  - Medication error [Not Recovered/Not Resolved]
  - Off label use [Not Recovered/Not Resolved]
  - Product use in unapproved indication [Not Recovered/Not Resolved]
